FAERS Safety Report 6220144-1 (Version None)
Quarter: 2009Q2

REPORT INFORMATION
  Report Type: 
  Country: None (occurrence: None)
  Receive Date: 20090609
  Receipt Date: 20090603
  Transmission Date: 20091009
  Serious: Yes (Life-Threatening, Hospitalization)
  Sender: FDA-Public Use
  Company Number: GB-BAUSCH-2009BL002756

PATIENT
  Age: 64 Year
  Sex: Male

DRUGS (3)
  1. PREDNISOLONE [Suspect]
     Indication: IMMUNOSUPPRESSION
  2. AZATHIOPRINE [Suspect]
     Indication: IMMUNOSUPPRESSION
  3. TACROLIMUS [Suspect]
     Indication: RENAL TRANSPLANT

REACTIONS (5)
  - CHOLECYSTITIS INFECTIVE [None]
  - CYTOMEGALOVIRUS VIRAEMIA [None]
  - INTESTINAL PERFORATION [None]
  - PERITONITIS SCLEROSING [None]
  - SMALL INTESTINAL OBSTRUCTION [None]
